FAERS Safety Report 6242402-7 (Version None)
Quarter: 2009Q2

REPORT INFORMATION
  Report Type: 
  Country: None (occurrence: None)
  Receive Date: 20090622
  Receipt Date: 20090622
  Transmission Date: 20091009
  Serious: No
  Sender: FDA-Public Use
  Company Number: None

PATIENT
  Sex: Female
  Weight: 58.9676 kg

DRUGS (3)
  1. ZICAM COLD REMEDY MATRIXX [Suspect]
     Indication: HYPERSENSITIVITY
     Dosage: ONE SPRAY EACH NOSTRIL  ONCE IN MAY 2007
     Dates: start: 20070501, end: 20070501
  2. ZICAM COLD REMEDY MATRIXX [Suspect]
     Indication: NASOPHARYNGITIS
     Dosage: ONE SPRAY EACH NOSTRIL  ONCE IN MAY 2007
     Dates: start: 20070501, end: 20070501
  3. ZICAM COLD REMEDY MATRIXX [Suspect]
     Indication: RHINORRHOEA
     Dosage: ONE SPRAY EACH NOSTRIL  ONCE IN MAY 2007
     Dates: start: 20070501, end: 20070501

REACTIONS (3)
  - AGEUSIA [None]
  - ANOSMIA [None]
  - NASAL DISCOMFORT [None]
